FAERS Safety Report 22327424 (Version 1)
Quarter: 2023Q2

REPORT INFORMATION
  Report Type: Spontaneous
  Country: US (occurrence: US)
  Receive Date: 20230516
  Receipt Date: 20230516
  Transmission Date: 20230722
  Serious: No
  Sender: FDA-Public Use
  Company Number: US-RADIUS HEALTH INC.-2021US003955

PATIENT
  Age: 66 Year
  Sex: Female

DRUGS (10)
  1. TYMLOS [Suspect]
     Active Substance: ABALOPARATIDE
     Indication: Osteoporosis
     Dosage: 80 MICROGRAM, QD
     Route: 058
     Dates: start: 20210616
  2. TYMLOS [Suspect]
     Active Substance: ABALOPARATIDE
     Dosage: 80 MICROGRAM, QD
     Route: 058
     Dates: start: 20210616
  3. COVID-19 VACCINE [Concomitant]
     Indication: Product used for unknown indication
  4. GABAPENTIN [Concomitant]
     Active Substance: GABAPENTIN
     Indication: Product used for unknown indication
  5. ESTRADIOL [Concomitant]
     Active Substance: ESTRADIOL
     Indication: Product used for unknown indication
  6. LEXAPRO [Concomitant]
     Active Substance: ESCITALOPRAM OXALATE
     Indication: Anxiety
  7. TRAMADOL [Concomitant]
     Active Substance: TRAMADOL
     Indication: Product used for unknown indication
  8. DELSYM [Concomitant]
     Active Substance: DEXTROMETHORPHAN
     Indication: COVID-19
  9. TYLENOL [Concomitant]
     Active Substance: ACETAMINOPHEN
     Indication: COVID-19
  10. ADVIL [Concomitant]
     Active Substance: IBUPROFEN
     Indication: COVID-19

REACTIONS (8)
  - Illness [Recovered/Resolved]
  - Brain fog [Not Recovered/Not Resolved]
  - Intentional dose omission [Unknown]
  - Anxiety [Unknown]
  - Tachycardia [Unknown]
  - Palpitations [Not Recovered/Not Resolved]
  - Drug hypersensitivity [Recovered/Resolved]
  - Product quality issue [Unknown]

NARRATIVE: CASE EVENT DATE: 20210601
